FAERS Safety Report 6896712-0 (Version None)
Quarter: 2010Q3

REPORT INFORMATION
  Report Type: 
  Country: None (occurrence: None)
  Receive Date: 20100802
  Receipt Date: 20070131
  Transmission Date: 20110219
  Serious: No
  Sender: FDA-Public Use
  Company Number: US-PFIZER INC-2007008380

PATIENT
  Sex: Female
  Weight: 56.7 kg

DRUGS (2)
  1. LYRICA [Suspect]
     Indication: ARTHRALGIA
     Dates: start: 20070123
  2. PREDNISONE [Concomitant]

REACTIONS (7)
  - FEELING ABNORMAL [None]
  - HYPERSOMNIA [None]
  - LIP PAIN [None]
  - LIP SWELLING [None]
  - NERVOUSNESS [None]
  - PARAESTHESIA [None]
  - SOMNOLENCE [None]
